FAERS Safety Report 10228191 (Version 2)
Quarter: 2014Q2

REPORT INFORMATION
  Report Type: Spontaneous
  Country: DE (occurrence: DE)
  Receive Date: 20140610
  Receipt Date: 20140612
  Transmission Date: 20141212
  Serious: Yes (Life-Threatening, Hospitalization)
  Sender: FDA-Public Use
  Company Number: DE-B.I. PHARMACEUTICALS,INC./RIDGEFIELD-2014-BI-25427DE

PATIENT
  Age: 52 Year
  Sex: Female

DRUGS (4)
  1. AGGRENOX [Suspect]
     Indication: PLATELET AGGREGATION INHIBITION
     Dosage: 1 ANZ
     Route: 048
     Dates: end: 20140514
  2. AGGRENOX [Suspect]
     Indication: CEREBELLAR INFARCTION
  3. ASS [Suspect]
     Indication: PLATELET AGGREGATION INHIBITION
     Dosage: 1 ANZ
     Route: 048
     Dates: start: 20140515, end: 20140609
  4. ASS [Suspect]
     Indication: CEREBELLAR INFARCTION

REACTIONS (1)
  - Cerebrovascular accident [Recovered/Resolved]
